FAERS Safety Report 21022897 (Version 1)
Quarter: 2022Q2

REPORT INFORMATION
  Report Type: Spontaneous
  Country: CN (occurrence: CN)
  Receive Date: 20220629
  Receipt Date: 20220629
  Transmission Date: 20220721
  Serious: Yes (Life-Threatening, Other)
  Sender: FDA-Public Use
  Company Number: CN-009507513-2206CHN007485

PATIENT
  Age: 50 Year
  Sex: Male
  Weight: 69 kg

DRUGS (2)
  1. CILASTATIN SODIUM\IMIPENEM [Suspect]
     Active Substance: CILASTATIN SODIUM\IMIPENEM
     Indication: Sepsis
     Dosage: 500 MG, Q6H
     Route: 041
     Dates: start: 20220610, end: 20220612
  2. GLUTATHIONE [Concomitant]
     Active Substance: GLUTATHIONE
     Indication: Hepatic failure
     Dosage: 1.2 G, ONCE A DAY
     Route: 041
     Dates: start: 20220610, end: 20220613

REACTIONS (8)
  - Hypertonia [Recovering/Resolving]
  - Musculoskeletal stiffness [Recovering/Resolving]
  - Hypoxia [Recovering/Resolving]
  - Mydriasis [Recovering/Resolving]
  - Trismus [Unknown]
  - Tic [Recovered/Resolved]
  - Heart rate decreased [Unknown]
  - Cyanosis [Unknown]

NARRATIVE: CASE EVENT DATE: 20220612
